FAERS Safety Report 22151775 (Version 1)
Quarter: 2023Q1

REPORT INFORMATION
  Report Type: Spontaneous
  Country: US (occurrence: US)
  Receive Date: 20230329
  Receipt Date: 20230329
  Transmission Date: 20230418
  Serious: Yes (Life-Threatening)
  Sender: FDA-Public Use
  Company Number: US-MYLANLABS-2023M1033236

PATIENT
  Age: 57 Year
  Sex: Male

DRUGS (9)
  1. EPINEPHRINE [Suspect]
     Active Substance: EPINEPHRINE
     Indication: Ventricular fibrillation
     Dosage: UNK
     Route: 065
  2. EPINEPHRINE [Suspect]
     Active Substance: EPINEPHRINE
     Indication: Cardiac arrest
  3. EPINEPHRINE [Suspect]
     Active Substance: EPINEPHRINE
     Indication: Resuscitation
  4. AMIODARONE [Suspect]
     Active Substance: AMIODARONE
     Indication: Ventricular fibrillation
     Dosage: 300 MILLIGRAM
     Route: 042
  5. AMIODARONE [Suspect]
     Active Substance: AMIODARONE
     Indication: Cardiac arrest
     Dosage: 150 MILLIGRAM
     Route: 042
  6. CALCIUM CHLORIDE [Suspect]
     Active Substance: CALCIUM CHLORIDE
     Indication: Ventricular fibrillation
     Dosage: 1 GRAM, BID
     Route: 065
  7. CALCIUM CHLORIDE [Suspect]
     Active Substance: CALCIUM CHLORIDE
     Indication: Cardiac arrest
  8. SODIUM BICARBONATE [Suspect]
     Active Substance: SODIUM BICARBONATE
     Indication: Ventricular fibrillation
     Dosage: 50 MILLIEQUIVALENT, BID
     Route: 065
  9. SODIUM BICARBONATE [Suspect]
     Active Substance: SODIUM BICARBONATE
     Indication: Cardiac arrest

REACTIONS (1)
  - Drug ineffective [Unknown]
